FAERS Safety Report 24756913 (Version 1)
Quarter: 2024Q4

REPORT INFORMATION
  Report Type: Report from Study
  Country: ES (occurrence: ES)
  Receive Date: 20241220
  Receipt Date: 20241220
  Transmission Date: 20250115
  Serious: Yes (Death, Other)
  Sender: ROCHE
  Company Number: ES-ROCHE-10000159187

PATIENT

DRUGS (1)
  1. TOCILIZUMAB [Suspect]
     Active Substance: TOCILIZUMAB
     Indication: Giant cell arteritis
     Route: 065

REACTIONS (15)
  - Infection [Unknown]
  - Aphthous ulcer [Unknown]
  - Skin reaction [Unknown]
  - Myopathy [Unknown]
  - Interstitial lung disease [Unknown]
  - Neutropenia [Unknown]
  - Thrombocytopenia [Unknown]
  - Bladder cancer [Unknown]
  - Colon cancer [Unknown]
  - Lung neoplasm malignant [Fatal]
  - Myelodysplastic syndrome [Unknown]
  - Intestinal ischaemia [Fatal]
  - Cerebrovascular accident [Fatal]
  - Streptococcal endocarditis [Fatal]
  - Death [Fatal]
